FAERS Safety Report 4373934-4 (Version None)
Quarter: 2004Q1

REPORT INFORMATION
  Report Type: 
  Country: None (occurrence: None)
  Receive Date: 20040305
  Receipt Date: 20031208
  Transmission Date: 20041129
  Serious: Yes (Other)
  Sender: FDA-Public Use
  Company Number: 2003UW16256

PATIENT
  Age: 60 Year
  Sex: Female

DRUGS (5)
  1. CRESTOR [Suspect]
     Dosage: 10 MG DAILY PO
     Route: 048
     Dates: start: 20031204
  2. ZESTORETIC [Concomitant]
  3. FUROSEMIDE [Concomitant]
  4. PREMARIN [Concomitant]
  5. PRILOSEC [Concomitant]

REACTIONS (1)
  - CHEST DISCOMFORT [None]
